FAERS Safety Report 5571601-2 (Version None)
Quarter: 2007Q4

REPORT INFORMATION
  Report Type: 
  Country: None (occurrence: None)
  Receive Date: 20071221
  Receipt Date: 20071218
  Transmission Date: 20080405
  Serious: Yes (Life-Threatening, Hospitalization)
  Sender: FDA-Public Use
  Company Number: ES-ELI_LILLY_AND_COMPANY-ES200712003837

PATIENT
  Age: 50 Year
  Sex: Female

DRUGS (2)
  1. OPTRUMA [Suspect]
     Indication: OSTEOPOROSIS
     Dosage: 60 MG, UNKNOWN
     Route: 048
     Dates: start: 19940101, end: 20071001
  2. NATECAL D [Concomitant]
     Dosage: UNK, UNKNOWN
     Route: 065
     Dates: start: 20071001

REACTIONS (1)
  - ARTERIAL THROMBOSIS [None]
